FAERS Safety Report 8564187-1 (Version None)
Quarter: 2012Q3

REPORT INFORMATION
  Report Type: 
  Country: None (occurrence: None)
  Receive Date: 20120803
  Receipt Date: 20120725
  Transmission Date: 20120928
  Serious: Yes (Hospitalization)
  Sender: FDA-Public Use
  Company Number: CA-JNJFOC-20120715178

PATIENT
  Sex: Male
  Weight: 77.2 kg

DRUGS (18)
  1. LIPITOR [Concomitant]
     Route: 065
  2. FLOMAX [Concomitant]
     Route: 065
  3. FLUTICASONE PROPIONATE [Concomitant]
     Route: 065
  4. MULTI-VITAMINS [Concomitant]
     Route: 065
  5. RAMIPRIL [Concomitant]
     Route: 065
  6. VITAMIN B-12 [Concomitant]
     Route: 065
  7. ARICEPT [Concomitant]
     Route: 065
  8. SPIRIVA [Concomitant]
     Route: 065
  9. CORTIFOAM [Concomitant]
     Route: 065
  10. REMICADE [Suspect]
     Indication: COLITIS ULCERATIVE
     Route: 042
     Dates: start: 20120223
  11. ASACOL [Concomitant]
     Route: 065
  12. AZATHIOPRINE [Concomitant]
     Route: 065
  13. FUROSEMIDE [Concomitant]
     Route: 065
  14. METOPROLOL TARTRATE [Concomitant]
     Route: 065
  15. LANSOPRAZOLE [Concomitant]
     Route: 065
  16. ASPIRIN [Concomitant]
     Route: 065
  17. IRON [Concomitant]
     Route: 065
  18. ALBUTEROL SULATE [Concomitant]
     Route: 065

REACTIONS (1)
  - THROMBOSIS [None]
